FAERS Safety Report 15077370 (Version 1)
Quarter: 2018Q3

REPORT INFORMATION
  Report Type: Spontaneous
  Country: KR (occurrence: KR)
  Receive Date: 20180627
  Receipt Date: 20180627
  Transmission Date: 20181010
  Serious: Yes (Death, Other)
  Sender: FDA-Public Use
  Company Number: KR-GLAXOSMITHKLINE-KR2018GSK110794

PATIENT
  Age: 29 Year
  Sex: Female
  Weight: 62 kg

DRUGS (3)
  1. DORMIZOL (ZOLPIDEM TARTRATE) [Suspect]
     Active Substance: ZOLPIDEM TARTRATE
     Indication: PRODUCT USED FOR UNKNOWN INDICATION
     Dosage: UNK
     Route: 048
  2. BELVIQ [Concomitant]
     Active Substance: LORCASERIN HYDROCHLORIDE
     Indication: PRODUCT USED FOR UNKNOWN INDICATION
     Dosage: UNK
  3. NICODERM CQ [Suspect]
     Active Substance: NICOTINE
     Indication: PRODUCT USED FOR UNKNOWN INDICATION
     Dosage: 70 DF, UNK
     Route: 062

REACTIONS (8)
  - Toxicity to various agents [Fatal]
  - Medication residue present [None]
  - Haemorrhage subcutaneous [Fatal]
  - Joint stiffness [None]
  - Application site scar [None]
  - Vomiting [None]
  - Lividity [None]
  - Intentional overdose [Fatal]
